FAERS Safety Report 9989791 (Version 1)
Quarter: 2014Q1

REPORT INFORMATION
  Report Type: Report from Study
  Country: US (occurrence: US)
  Receive Date: 20140310
  Receipt Date: 20140310
  Transmission Date: 20141002
  Serious: No
  Sender: FDA-Public Use
  Company Number: US-ABBVIE-13P-163-1129035-00

PATIENT
  Sex: Female

DRUGS (4)
  1. HUMIRA [Suspect]
     Indication: CROHN^S DISEASE
     Dates: start: 20130603
  2. LIALDA [Concomitant]
     Indication: CROHN^S DISEASE
     Dosage: 1.2 GM X 3 TABLETS DAILY
     Route: 048
  3. AZATHIOPRINE [Concomitant]
     Indication: DYSPEPSIA
     Dosage: 50 MG 2 TABS DAILY
     Route: 048
  4. PANTOPRAZOLE [Concomitant]
     Indication: DYSPEPSIA
     Route: 048

REACTIONS (1)
  - Mass [Not Recovered/Not Resolved]
